FAERS Safety Report 18732559 (Version 1)
Quarter: 2021Q1

REPORT INFORMATION
  Report Type: Report from Study
  Country: US (occurrence: US)
  Receive Date: 20210112
  Receipt Date: 20210112
  Transmission Date: 20210419
  Serious: Yes (Death, Hospitalization, Other)
  Sender: FDA-Public Use
  Company Number: US-JNJFOC-20201034858

PATIENT
  Age: 71 Year
  Sex: Female
  Weight: 49.94 kg

DRUGS (7)
  1. LETAIRIS [Suspect]
     Active Substance: AMBRISENTAN
     Indication: PULMONARY HYPERTENSION
     Dates: start: 20200128
  2. LETAIRIS [Suspect]
     Active Substance: AMBRISENTAN
     Indication: SARCOIDOSIS
  3. XARELTO [Concomitant]
     Active Substance: RIVAROXABAN
  4. SELEXIPAG [Suspect]
     Active Substance: SELEXIPAG
     Indication: PULMONARY ARTERIAL HYPERTENSION
     Route: 048
  5. SELEXIPAG [Suspect]
     Active Substance: SELEXIPAG
     Route: 048
  6. ADCIRCA [Concomitant]
     Active Substance: TADALAFIL
  7. DILTIAZEM. [Concomitant]
     Active Substance: DILTIAZEM

REACTIONS (7)
  - Incorrect dose administered [Unknown]
  - Hip fracture [Unknown]
  - Arrhythmia [Unknown]
  - Overdose [Unknown]
  - Asthenia [Unknown]
  - Cardiac arrest [Fatal]
  - Hypotension [Unknown]

NARRATIVE: CASE EVENT DATE: 20201027
